FAERS Safety Report 4326274-3 (Version None)
Quarter: 2004Q1

REPORT INFORMATION
  Report Type: 
  Country: None (occurrence: None)
  Receive Date: 20040329
  Receipt Date: 20030411
  Transmission Date: 20041129
  Serious: Yes (Death)
  Sender: FDA-Public Use
  Company Number: US-MERCK-0304USA01430

PATIENT
  Age: 63 Year
  Sex: Female

DRUGS (2)
  1. VIOXX [Suspect]
     Indication: ARTHRITIS
     Route: 048
     Dates: start: 20000903, end: 20010326
  2. VIOXX [Suspect]
     Route: 048
     Dates: start: 20000903, end: 20010326

REACTIONS (2)
  - ADVERSE EVENT [None]
  - INJURY [None]
